FAERS Safety Report 19420678 (Version 5)
Quarter: 2021Q4

REPORT INFORMATION
  Report Type: Report from Study
  Country: CA (occurrence: CA)
  Receive Date: 20210616
  Receipt Date: 20211222
  Transmission Date: 20220303
  Serious: Yes (Hospitalization, Other)
  Sender: FDA-Public Use
  Company Number: CA-ABBVIE-21K-028-3947300-00

PATIENT
  Sex: Female

DRUGS (2)
  1. RINVOQ [Suspect]
     Active Substance: UPADACITINIB
     Indication: Rheumatoid arthritis
     Route: 048
     Dates: start: 20210122, end: 2021
  2. RINVOQ [Suspect]
     Active Substance: UPADACITINIB
     Route: 048
     Dates: start: 202106

REACTIONS (20)
  - Intervertebral disc protrusion [Unknown]
  - Hospitalisation [Unknown]
  - Poor venous access [Unknown]
  - Hip fracture [Unknown]
  - Pelvic fracture [Unknown]
  - Mobility decreased [Unknown]
  - Musculoskeletal pain [Unknown]
  - Pain in extremity [Unknown]
  - Gait disturbance [Unknown]
  - Mobility decreased [Recovering/Resolving]
  - Peripheral swelling [Unknown]
  - Pain [Unknown]
  - Drug ineffective [Unknown]
  - Disability [Unknown]
  - Pyrexia [Unknown]
  - Malaise [Unknown]
  - Groin pain [Unknown]
  - Osteoporosis [Unknown]
  - Skin infection [Unknown]
  - Urinary tract infection [Unknown]

NARRATIVE: CASE EVENT DATE: 20210101
